FAERS Safety Report 20461290 (Version 4)
Quarter: 2022Q1

REPORT INFORMATION
  Report Type: Spontaneous
  Country: TR (occurrence: TR)
  Receive Date: 20220211
  Receipt Date: 20220307
  Transmission Date: 20220423
  Serious: Yes (Hospitalization, Other)
  Sender: FDA-Public Use
  Company Number: TR-PFIZER INC-202200215355

PATIENT
  Age: 58 Year
  Sex: Female

DRUGS (3)
  1. XELJANZ [Suspect]
     Active Substance: TOFACITINIB CITRATE
     Indication: Rheumatoid arthritis
     Dosage: 25 MG, 2X/DAY
     Route: 048
     Dates: start: 202109, end: 202112
  2. METHOTREXATE [Suspect]
     Active Substance: METHOTREXATE
  3. LEFLUNOMIDE [Suspect]
     Active Substance: LEFLUNOMIDE

REACTIONS (6)
  - Haemorrhage [Recovered/Resolved]
  - Platelet dysfunction [Recovered/Resolved]
  - Movement disorder [Recovered/Resolved]
  - General physical health deterioration [Recovered/Resolved]
  - Hypertension [Recovering/Resolving]
  - Multiple drug therapy [Unknown]

NARRATIVE: CASE EVENT DATE: 20211201
